FAERS Safety Report 11274779 (Version 6)
Quarter: 2016Q2

REPORT INFORMATION
  Report Type: Report from Study
  Country: FR (occurrence: FR)
  Receive Date: 20150716
  Receipt Date: 20160413
  Transmission Date: 20160815
  Serious: Yes (Hospitalization)
  Sender: FDA-Public Use
  Company Number: FR-AMGEN-FRACT2015070184

PATIENT
  Age: 73 Year
  Sex: Female
  Weight: 78 kg

DRUGS (38)
  1. DUROGESIC [Concomitant]
     Active Substance: FENTANYL
     Dosage: 25 MUG, UNK
     Route: 062
     Dates: start: 20150219
  2. COAPROVEL [Concomitant]
     Active Substance: HYDROCHLOROTHIAZIDE\IRBESARTAN
     Dosage: 12.5 MG, UNK
     Route: 048
     Dates: start: 1979, end: 201510
  3. MORPHINE [Concomitant]
     Active Substance: MORPHINE
     Dosage: 60 MG, UNK
     Route: 048
     Dates: start: 201506
  4. DEXAMETHASONE. [Concomitant]
     Active Substance: DEXAMETHASONE
     Dosage: 8 TO 20 MG, UNK
     Dates: start: 20141125, end: 20150723
  5. BUDESONIDE. [Concomitant]
     Active Substance: BUDESONIDE
     Dosage: 1 UNK, UNK
     Route: 048
     Dates: start: 20150703, end: 20150710
  6. CONTRAMAL [Concomitant]
     Active Substance: TRAMADOL HYDROCHLORIDE
     Dosage: 100 MG, UNK
     Route: 048
     Dates: start: 20150215, end: 20150218
  7. AMOXICILLINE [Concomitant]
     Active Substance: AMOXICILLIN
     Dosage: 1 G, UNK
     Route: 048
     Dates: start: 20150703, end: 20150710
  8. MEROPENEM. [Concomitant]
     Active Substance: MEROPENEM
     Dosage: 1 G, UNK
     Route: 042
     Dates: start: 20141129, end: 20141219
  9. AMBISOME [Concomitant]
     Active Substance: AMPHOTERICIN B
     Dosage: 50 MG, UNK
     Route: 042
     Dates: start: 20141128, end: 20141216
  10. METHOTREXATE [Concomitant]
     Active Substance: METHOTREXATE
     Dosage: 15 MG, UNK
     Route: 037
     Dates: start: 20141118, end: 20150203
  11. BLINATUMOMAB [Suspect]
     Active Substance: BLINATUMOMAB
     Indication: ACUTE LYMPHOCYTIC LEUKAEMIA
     Dosage: 28 MUG, UNK
     Route: 041
     Dates: start: 20141125
  12. AERIUS [Concomitant]
     Active Substance: DESLORATADINE
     Dosage: 5 MG, UNK
     Route: 048
     Dates: start: 20141218, end: 20150716
  13. ZELITREX [Concomitant]
     Active Substance: VALACYCLOVIR HYDROCHLORIDE
     Dosage: 500 MG, UNK
     Route: 048
  14. LANTUS [Concomitant]
     Active Substance: INSULIN GLARGINE
     Dosage: 25 IU, UNK
     Route: 058
     Dates: start: 201403
  15. PERFALGAN [Concomitant]
     Active Substance: ACETAMINOPHEN
     Dosage: 1 G, UNK
     Route: 042
     Dates: start: 20141126, end: 20150726
  16. RIBAVIRINE [Concomitant]
     Active Substance: RIBAVIRIN
     Dosage: 600 MG, UNK
     Route: 048
     Dates: start: 20141128, end: 20141212
  17. CYTARABINE. [Concomitant]
     Active Substance: CYTARABINE
     Dosage: 40 MG, UNK
     Route: 037
     Dates: start: 20141118, end: 20150203
  18. IMOVANE [Concomitant]
     Active Substance: ZOPICLONE
     Dosage: 3.75 TO 7.5 MG, UNK
     Route: 048
     Dates: start: 20141212, end: 20150730
  19. INSULIN [Concomitant]
     Active Substance: INSULIN NOS
     Dosage: 20 IU, UNK
     Route: 058
     Dates: start: 20150623, end: 20150623
  20. NOVORAPID [Concomitant]
     Active Substance: INSULIN ASPART
     Dosage: 3 IU, UNK
     Route: 058
     Dates: start: 201403
  21. EXOMUC [Concomitant]
     Active Substance: ACETYLCYSTEINE
     Dosage: 200 MG, UNK
     Route: 048
     Dates: start: 20150703, end: 20150710
  22. ATARAX [Concomitant]
     Active Substance: HYDROXYZINE\HYDROXYZINE HYDROCHLORIDE
     Dosage: 25 TO 50 MG, UNK
     Route: 048
     Dates: start: 20141202, end: 20141212
  23. TAZOCILLINE [Concomitant]
     Active Substance: PIPERACILLIN SODIUM\TAZOBACTAM SODIUM
     Dosage: 4 G, UNK
     Route: 042
     Dates: start: 20141124, end: 20141128
  24. LEVOTHYROX [Concomitant]
     Active Substance: LEVOTHYROXINE
     Dosage: 50 MUG, UNK
     Route: 048
     Dates: start: 2011
  25. PENTACARINAT [Concomitant]
     Active Substance: PENTAMIDINE ISETHIONATE
     Dosage: UNK
     Route: 045
     Dates: start: 20141125, end: 20150717
  26. OXYNORM [Concomitant]
     Active Substance: OXYCODONE HYDROCHLORIDE
     Dosage: 2 TO 10 MG, UNK
     Dates: start: 20150106, end: 20150726
  27. INEXIUM [Concomitant]
     Active Substance: ESOMEPRAZOLE
     Dosage: 40 MG, UNK
     Route: 048
  28. ACUPAN [Concomitant]
     Active Substance: NEFOPAM HYDROCHLORIDE
     Dosage: 20 MG AND 1 UNK, UNK
     Route: 048
     Dates: start: 20141207, end: 201508
  29. IDARAC [Concomitant]
     Active Substance: FLOCTAFENINE
     Dosage: 400 MG AND 1 UNK, UNK
     Route: 048
     Dates: start: 20141128
  30. DOLIPRANE [Concomitant]
     Active Substance: ACETAMINOPHEN
     Dosage: 1 G, UNK
     Route: 048
     Dates: start: 20150623, end: 20150720
  31. TUSSIDANE [Concomitant]
     Active Substance: DEXTROMETHORPHAN HYDROBROMIDE
     Dosage: 2 UNK, UNK
     Route: 048
     Dates: start: 20150227, end: 20150303
  32. TUSSIPAX [Concomitant]
     Active Substance: CODEINE\ETHYLMORPHINE HYDROCHLORIDE
     Dosage: 1 UNK, UNK
     Route: 048
     Dates: start: 20150226, end: 20150304
  33. LEDERFOLINE [Concomitant]
     Active Substance: LEUCOVORIN CALCIUM
     Dosage: 25 MG, UNK
     Route: 048
     Dates: start: 201403
  34. OXYCONTIN [Concomitant]
     Active Substance: OXYCODONE HYDROCHLORIDE
     Dosage: 30 MG, UNK
     Route: 048
     Dates: start: 201506, end: 20150718
  35. AUGMENTIN [Concomitant]
     Active Substance: AMOXICILLIN\CLAVULANATE POTASSIUM
     Dosage: 1 G, UNK
     Route: 042
     Dates: start: 20150226, end: 20150716
  36. POLARAMINE [Concomitant]
     Active Substance: DEXCHLORPHENIRAMINE MALEATE
     Dosage: 1 UNK, UNK
     Route: 042
     Dates: start: 20141126, end: 20141126
  37. VANCOMYCINE [Concomitant]
     Active Substance: VANCOMYCIN
     Dosage: 1 G, UNK
     Route: 042
     Dates: start: 20141126, end: 20141212
  38. METHYLPREDNISOLONE. [Concomitant]
     Active Substance: METHYLPREDNISOLONE
     Dosage: 40 MG, UNK
     Route: 037
     Dates: start: 20141118, end: 20150203

REACTIONS (2)
  - Haematemesis [Recovered/Resolved]
  - Discomfort [Recovered/Resolved]

NARRATIVE: CASE EVENT DATE: 20150710
